FAERS Safety Report 8684494 (Version 2)
Quarter: 2013Q2

REPORT INFORMATION
  Report Type: Spontaneous
  Country: US (occurrence: None)
  Receive Date: 20120412
  Receipt Date: 20121227
  Transmission Date: 20140414
  Serious: Yes (Other)
  Sender: FDA-Public Use
  Company Number: PHEH2010US02629

PATIENT
  Age: 54 Year
  Sex: Female

DRUGS (5)
  1. CLOZARIL [Suspect]
     Indication: SCHIZOPHRENIA
     Dosage: 75 MG, QD, ORAL
     Route: 048
  2. PROZAC [Concomitant]
  3. ATIVAN [Concomitant]
  4. WELLBUTRIN (BUPROPION HYDROCHLORIDE) [Concomitant]
  5. ACERBON (LISINOPRIL) [Concomitant]

REACTIONS (1)
  - NEUTROPHIL COUNT DECREASED [None]
